FAERS Safety Report 9246258 (Version 1)
Quarter: 2013Q2

REPORT INFORMATION
  Report Type: Spontaneous
  Country: US (occurrence: US)
  Receive Date: 20130422
  Receipt Date: 20130422
  Transmission Date: 20140414
  Serious: Yes (Other)
  Sender: FDA-Public Use
  Company Number: US-ROCHE-1216795

PATIENT
  Age: 54 Year
  Sex: Male

DRUGS (3)
  1. ZELBORAF [Suspect]
     Indication: PRODUCT USED FOR UNKNOWN INDICATION
     Dosage: 240 MG X 4
     Route: 048
     Dates: start: 20121002, end: 201212
  2. MORPHINE [Concomitant]
  3. AMBIEN [Concomitant]

REACTIONS (1)
  - Disease progression [Not Recovered/Not Resolved]
